FAERS Safety Report 9421385 (Version 1)
Quarter: 2013Q3

REPORT INFORMATION
  Report Type: Spontaneous
  Country: US (occurrence: US)
  Receive Date: 20130725
  Receipt Date: 20130725
  Transmission Date: 20140515
  Serious: Yes (Other)
  Sender: FDA-Public Use
  Company Number: US-RB-056405-13

PATIENT
  Age: 30 Year
  Sex: Male

DRUGS (2)
  1. SUBOXONE FILM [Suspect]
     Indication: DRUG DEPENDENCE
     Dosage: SUBOXONE FILM; DOSING DETAILS UNKNOWN; DAILY
     Route: 060
     Dates: start: 2006, end: 2013
  2. SUBOXONE FILM [Suspect]
     Dosage: SUBOXONE FILM; CUTS THE 8 MG FILM IN 10 PIECES, TAKES ONE TO TWO PIECES DAILY
     Route: 060
     Dates: start: 2013

REACTIONS (6)
  - Convulsion [Recovered/Resolved]
  - Drug withdrawal syndrome [Recovered/Resolved]
  - Insomnia [Recovered/Resolved]
  - Tremor [Recovered/Resolved]
  - Wrong technique in drug usage process [Not Recovered/Not Resolved]
  - Underdose [Not Recovered/Not Resolved]
